FAERS Safety Report 14147614 (Version 1)
Quarter: 2017Q4

REPORT INFORMATION
  Report Type: Spontaneous
  Country: US (occurrence: US)
  Receive Date: 20171031
  Receipt Date: 20171031
  Transmission Date: 20180321
  Serious: No
  Sender: FDA-Public Use
  Company Number: US-ROMARKLABS-2016-US-000076

PATIENT
  Age: 47 Year
  Sex: Male

DRUGS (1)
  1. ALINIA [Suspect]
     Active Substance: NITAZOXANIDE
     Indication: ABDOMINAL DISCOMFORT
     Dosage: 1 TABLET TWICE PER DAY
     Route: 048
     Dates: start: 20160928, end: 20161001

REACTIONS (2)
  - Semen discolouration [Recovered/Resolved]
  - Chromaturia [Recovered/Resolved]

NARRATIVE: CASE EVENT DATE: 20160929
